FAERS Safety Report 9805326 (Version 4)
Quarter: 2014Q2

REPORT INFORMATION
  Report Type: Spontaneous
  Country: IT (occurrence: IT)
  Receive Date: 20140109
  Receipt Date: 20140418
  Transmission Date: 20141212
  Serious: Yes (Hospitalization, Other)
  Sender: FDA-Public Use
  Company Number: IT-MERCK-1401ITA002367

PATIENT
  Age: 67 Year
  Sex: Female

DRUGS (1)
  1. INVANZ [Suspect]
     Indication: URINARY TRACT INFECTION
     Dosage: 1 G, DAILY
     Route: 042
     Dates: start: 20131219, end: 20131223

REACTIONS (1)
  - Epilepsy [Recovering/Resolving]
